FAERS Safety Report 21676967 (Version 1)
Quarter: 2022Q4

REPORT INFORMATION
  Report Type: Spontaneous
  Country: GB (occurrence: GB)
  Receive Date: 20221203
  Receipt Date: 20221203
  Transmission Date: 20230113
  Serious: Yes (Other)
  Sender: FDA-Public Use
  Company Number: None

PATIENT
  Age: 81 Year
  Sex: Male
  Weight: 84 kg

DRUGS (6)
  1. SILDENAFIL [Suspect]
     Active Substance: SILDENAFIL
     Indication: Product used for unknown indication
     Dosage: UNIT DOSE: 25MG
     Route: 065
     Dates: start: 20220308
  2. ASPIRIN [Concomitant]
     Active Substance: ASPIRIN
     Indication: Product used for unknown indication
     Dosage: 1 DOSAGE FORMS DAILY; WITH FOOD, AFTER BREAKFAST, UNIT DOSE: 1DF, FREQUENCY: ONCE A DAY
     Dates: start: 20220530
  3. ATORVASTATIN [Concomitant]
     Active Substance: ATORVASTATIN
     Indication: Product used for unknown indication
     Dosage: 1 DOSAGE FORMS DAILY; AT NIGHT; NO  GRAPEFRUIT, UNIT DOSE: 1DF, FREQUENCY: ONCE A DAY
     Dates: start: 20220216
  4. FINASTERIDE [Concomitant]
     Active Substance: FINASTERIDE
     Indication: Product used for unknown indication
     Dosage: 1 DOSAGE FORMS DAILY; UNIT DOSE: 1DF, FREQUENCY: ONCE A DAY
     Dates: start: 20220530
  5. FOLIC ACID [Concomitant]
     Active Substance: FOLIC ACID
     Indication: Product used for unknown indication
     Dosage: 1 DOSAGE FORMS DAILY; UNIT DOSE: 1DF, FREQUENCY: ONCE A DAY
     Dates: start: 20220707
  6. MEMANTINE [Concomitant]
     Active Substance: MEMANTINE
     Indication: Product used for unknown indication
     Dosage: 1 DOSAGE FORMS DAILY; UNIT DOSE: 1DF, FREQUENCY: ONCE A DAY
     Dates: start: 20220406

REACTIONS (1)
  - Hypersensitivity [Recovered/Resolved]
